FAERS Safety Report 4921286-0 (Version None)
Quarter: 2006Q1

REPORT INFORMATION
  Report Type: 
  Country: None (occurrence: None)
  Receive Date: 20060224
  Receipt Date: 20060215
  Transmission Date: 20060701
  Serious: Yes (Hospitalization)
  Sender: FDA-Public Use
  Company Number: PHRM2006FR00821

PATIENT
  Age: 30 Year
  Sex: Female

DRUGS (3)
  1. CLOZAPINE [Suspect]
     Indication: SCHIZOPHRENIA
     Dosage: 300 MG DAILY
     Route: 048
  2. CLOZAPINE [Suspect]
     Dosage: 100 MG DAILY
     Route: 048
  3. TEGRETOL [Suspect]
     Indication: BIPOLAR DISORDER
     Route: 048

REACTIONS (7)
  - ABDOMINAL PAIN [None]
  - BLOOD CREATININE INCREASED [None]
  - INFLAMMATION [None]
  - KIDNEY ENLARGEMENT [None]
  - LYMPHOCYTIC INFILTRATION [None]
  - NEPHRITIS INTERSTITIAL [None]
  - SJOGREN'S SYNDROME [None]
